FAERS Safety Report 16917448 (Version 5)
Quarter: 2020Q1

REPORT INFORMATION
  Report Type: Spontaneous
  Country: BR (occurrence: BR)
  Receive Date: 20191015
  Receipt Date: 20200214
  Transmission Date: 20200409
  Serious: Yes (Hospitalization, Other)
  Sender: FDA-Public Use
  Company Number: BR-GLAXOSMITHKLINE-BR2018GSK224019

PATIENT
  Age: 77 Year
  Sex: Female
  Weight: 69 kg

DRUGS (3)
  1. CEREBRIL [Concomitant]
     Indication: ASTHMA
     Dosage: UNK
  2. FOSTAIR [Concomitant]
     Active Substance: BECLOMETHASONE\FORMOTEROL
     Indication: ASTHMA
     Dosage: UNK
  3. NUCALA [Suspect]
     Active Substance: MEPOLIZUMAB
     Indication: ASTHMA
     Dosage: 100 MG, UNK
     Dates: start: 20181031

REACTIONS (12)
  - Inappropriate schedule of product administration [Not Recovered/Not Resolved]
  - Bedridden [Unknown]
  - Hypersensitivity [Unknown]
  - Pyrexia [Unknown]
  - Asthmatic crisis [Unknown]
  - Arrhythmia [Unknown]
  - Dyspnoea [Unknown]
  - Wheezing [Unknown]
  - Respiratory symptom [Unknown]
  - Asthma [Unknown]
  - Product dose omission [Not Recovered/Not Resolved]
  - Swollen tongue [Not Recovered/Not Resolved]

NARRATIVE: CASE EVENT DATE: 20200206
